FAERS Safety Report 15204048 (Version 1)
Quarter: 2018Q3

REPORT INFORMATION
  Report Type: Spontaneous
  Country: US (occurrence: US)
  Receive Date: 20180628
  Receipt Date: 20180628
  Transmission Date: 20181010
  Serious: Yes (Other)
  Sender: FDA-Public Use
  Company Number: None

PATIENT
  Age: 55 Year
  Sex: Female
  Weight: 101.25 kg

DRUGS (13)
  1. BIOTIN [Concomitant]
     Active Substance: BIOTIN
  2. VITAMIN D [Concomitant]
     Active Substance: CHOLECALCIFEROL
  3. LOSATAN [Concomitant]
     Active Substance: LOSARTAN
  4. METOPROLOL FLECAINIDE [Concomitant]
  5. VITAMIN B12 [Concomitant]
     Active Substance: CYANOCOBALAMIN
  6. ASPIRIN. [Concomitant]
     Active Substance: ASPIRIN
  7. METFORMIN [Concomitant]
     Active Substance: METFORMIN HYDROCHLORIDE
  8. HCTZ [Concomitant]
     Active Substance: HYDROCHLOROTHIAZIDE
  9. CETIRIZINE [Concomitant]
     Active Substance: CETIRIZINE HYDROCHLORIDE
  10. FISH OIL [Concomitant]
     Active Substance: FISH OIL
  11. COPAXONE [Suspect]
     Active Substance: GLATIRAMER ACETATE
     Indication: MULTIPLE SCLEROSIS
     Dosage: ?          QUANTITY:1 INJECTION(S);?
     Route: 058
  12. COPAXONE [Concomitant]
     Active Substance: GLATIRAMER ACETATE
  13. CENTRUM [Concomitant]
     Active Substance: VITAMINS

REACTIONS (7)
  - Chills [None]
  - Muscle spasms [None]
  - Product quality issue [None]
  - Pyrexia [None]
  - Myalgia [None]
  - Nasal congestion [None]
  - Nausea [None]

NARRATIVE: CASE EVENT DATE: 20180627
